FAERS Safety Report 7797298-9 (Version None)
Quarter: 2011Q4

REPORT INFORMATION
  Report Type: 
  Country: None (occurrence: None)
  Receive Date: 20111005
  Receipt Date: 20110927
  Transmission Date: 20120403
  Serious: Yes (Other)
  Sender: FDA-Public Use
  Company Number: US-CELGENEUS-163-21880-11083349

PATIENT
  Sex: Female

DRUGS (11)
  1. REVLIMID [Suspect]
     Dosage: 10 MILLIGRAM
     Route: 048
     Dates: start: 20110601
  2. PRILOSEC [Concomitant]
     Route: 065
  3. KEPPRA [Concomitant]
     Route: 065
  4. OXYCONTIN [Concomitant]
     Route: 065
  5. ZOMETA [Concomitant]
     Route: 065
  6. OXYCODONE HCL [Concomitant]
     Route: 065
  7. REVLIMID [Suspect]
     Dosage: 15 MILLIGRAM
     Route: 048
     Dates: start: 20100601
  8. XANAX [Concomitant]
     Route: 065
  9. LIDOCAINE [Concomitant]
     Route: 065
  10. REVLIMID [Suspect]
     Indication: MULTIPLE MYELOMA
     Dosage: 25 MILLIGRAM
     Route: 048
     Dates: start: 20090801
  11. AMITRIPTYLINE HCL [Concomitant]
     Route: 065

REACTIONS (2)
  - BLADDER PROLAPSE [None]
  - INSOMNIA [None]
